FAERS Safety Report 4677563-4 (Version None)
Quarter: 2005Q2

REPORT INFORMATION
  Report Type: 
  Country: None (occurrence: None)
  Receive Date: 20050526
  Receipt Date: 20050526
  Transmission Date: 20051028
  Serious: No
  Sender: FDA-Public Use
  Company Number: None

PATIENT
  Age: 56 Year
  Sex: Male
  Weight: 144.2439 kg

DRUGS (14)
  1. IBUPROFEN [Suspect]
     Indication: RHEUMATOID ARTHRITIS
     Dosage: 200 MG PRN
  2. ACETAMINOPHEN [Concomitant]
  3. AMIODARONE HCL [Concomitant]
  4. DIGOXIN [Concomitant]
  5. COLCHICINE [Concomitant]
  6. FELODIPINE [Concomitant]
  7. FLUNISOLIDE [Concomitant]
  8. FA [Concomitant]
  9. FUROSEMIDE [Concomitant]
  10. LORATADINE [Concomitant]
  11. METHOTREXATE [Concomitant]
  12. METOPROLOL [Concomitant]
  13. SPIRONOLACTONE [Concomitant]
  14. WARFARIN [Concomitant]

REACTIONS (6)
  - ASTHENIA [None]
  - DYSPNOEA [None]
  - FATIGUE [None]
  - INTERNATIONAL NORMALISED RATIO DECREASED [None]
  - MELAENA [None]
  - PALLOR [None]
